FAERS Safety Report 20861087 (Version 1)
Quarter: 2022Q2

REPORT INFORMATION
  Report Type: Spontaneous
  Country: US (occurrence: US)
  Receive Date: 20220523
  Receipt Date: 20220523
  Transmission Date: 20220721
  Serious: No
  Sender: FDA-Public Use
  Company Number: US-BAYER-2022A072864

PATIENT
  Age: 8 Year
  Sex: Female

DRUGS (2)
  1. CLARITIN [Suspect]
     Active Substance: LORATADINE
     Indication: Prophylaxis
     Dosage: UNK
     Route: 048
  2. CLARITIN [Suspect]
     Active Substance: LORATADINE
     Indication: Hypersensitivity
     Dosage: 10 DF, QD
     Route: 048
     Dates: start: 20220520, end: 20220520

REACTIONS (1)
  - Accidental exposure to product by child [Recovering/Resolving]

NARRATIVE: CASE EVENT DATE: 20220520
